FAERS Safety Report 4866910-6 (Version None)
Quarter: 2005Q4

REPORT INFORMATION
  Report Type: 
  Country: None (occurrence: None)
  Receive Date: 20051222
  Receipt Date: 20051205
  Transmission Date: 20060501
  Serious: Yes (Other)
  Sender: FDA-Public Use
  Company Number: 200510837

PATIENT
  Age: 36 Year
  Sex: Female

DRUGS (4)
  1. DYSPORT (BOTULINUM TOXIN TYPE A) [Suspect]
     Indication: MUSCLE SPASTICITY
     Dates: start: 20020829, end: 20020829
  2. DYSPORT (BOTULINUM TOXIN TYPE A) [Suspect]
     Indication: MUSCLE SPASTICITY
     Dates: start: 20020809, end: 20020809
  3. METHYLPREDNISOLONE [Concomitant]
  4. BACLOFEN [Concomitant]

REACTIONS (3)
  - MUSCLE NECROSIS [None]
  - PURULENT DISCHARGE [None]
  - SKIN NECROSIS [None]
